FAERS Safety Report 6687640-4 (Version None)
Quarter: 2010Q2

REPORT INFORMATION
  Report Type: 
  Country: None (occurrence: None)
  Receive Date: 20100415
  Receipt Date: 20100409
  Transmission Date: 20101027
  Serious: Yes (Death, Life-Threatening)
  Sender: FDA-Public Use
  Company Number: 2009US004281

PATIENT
  Age: 16 Year
  Sex: Female

DRUGS (2)
  1. AMBISOME [Suspect]
     Indication: CANDIDIASIS
     Dosage: IV NOS
     Route: 042
     Dates: start: 20091128, end: 20091130
  2. AMBISOME [Suspect]
     Indication: SEPSIS
     Dosage: IV NOS
     Route: 042
     Dates: start: 20091128, end: 20091130

REACTIONS (1)
  - RHABDOMYOLYSIS [None]
